FAERS Safety Report 14426843 (Version 1)
Quarter: 2018Q1

REPORT INFORMATION
  Report Type: Spontaneous
  Country: US (occurrence: US)
  Receive Date: 20180123
  Receipt Date: 20180123
  Transmission Date: 20180509
  Serious: No
  Sender: FDA-Public Use
  Company Number: US-GLAXOSMITHKLINE-US2018GSK010869

PATIENT
  Sex: Male

DRUGS (2)
  1. REMICADE [Concomitant]
     Active Substance: INFLIXIMAB
     Indication: COLITIS ULCERATIVE
  2. BUPROPION. [Suspect]
     Active Substance: BUPROPION
     Indication: COLITIS ULCERATIVE
     Dosage: UNK
     Dates: start: 2013

REACTIONS (4)
  - Adverse drug reaction [Unknown]
  - Off label use [Unknown]
  - Therapeutic response unexpected [Not Recovered/Not Resolved]
  - Product use in unapproved indication [Unknown]

NARRATIVE: CASE EVENT DATE: 2013
